FAERS Safety Report 12548504 (Version 1)
Quarter: 2016Q3

REPORT INFORMATION
  Report Type: Spontaneous
  Country: US (occurrence: None)
  Receive Date: 20160711
  Receipt Date: 20160711
  Transmission Date: 20161109
  Serious: No
  Sender: FDA-Public Use
  Company Number: None

PATIENT
  Sex: Female

DRUGS (1)
  1. SIMPONI [Suspect]
     Active Substance: GOLIMUMAB
     Dosage: 50MG EVERY MONTH
     Route: 058
     Dates: start: 20160216, end: 20160419

REACTIONS (2)
  - Drug hypersensitivity [None]
  - Urticaria [None]

NARRATIVE: CASE EVENT DATE: 20160428
